FAERS Safety Report 10064221 (Version 1)
Quarter: 2014Q2

REPORT INFORMATION
  Report Type: Report from Study
  Country: JP (occurrence: JP)
  Receive Date: 20140408
  Receipt Date: 20140408
  Transmission Date: 20141212
  Serious: Yes (Hospitalization, Disabling)
  Sender: FDA-Public Use
  Company Number: JP-JNJFOC-20140403644

PATIENT
  Age: 82 Year
  Sex: Female
  Weight: 45 kg

DRUGS (12)
  1. XARELTO [Suspect]
     Indication: ATRIAL FIBRILLATION
     Route: 048
     Dates: start: 20130905
  2. XARELTO [Suspect]
     Indication: THROMBOSIS PROPHYLAXIS
     Route: 048
     Dates: start: 20130905
  3. XARELTO [Suspect]
     Indication: CEREBROVASCULAR ACCIDENT PROPHYLAXIS
     Route: 048
     Dates: start: 20130905
  4. LUPRAC [Concomitant]
     Route: 048
  5. SELARA (EPLERENONE) [Concomitant]
     Route: 048
  6. CARDENALIN [Concomitant]
     Route: 048
  7. DIART [Concomitant]
     Route: 048
  8. ALOSITOL [Concomitant]
     Route: 048
  9. MAINTATE [Concomitant]
     Route: 048
  10. LANIRAPID [Concomitant]
     Route: 048
  11. AIMIX [Concomitant]
     Route: 048
  12. LASIX [Concomitant]
     Route: 048

REACTIONS (1)
  - Ischaemic stroke [Recovered/Resolved with Sequelae]
